FAERS Safety Report 4289329-8 (Version None)
Quarter: 2004Q1

REPORT INFORMATION
  Report Type: 
  Country: None (occurrence: None)
  Receive Date: 20040206
  Receipt Date: 20040127
  Transmission Date: 20041129
  Serious: Yes (Death)
  Sender: FDA-Public Use
  Company Number: 2004196819JP

PATIENT
  Sex: Male

DRUGS (6)
  1. SOLU-CORTEF [Suspect]
     Indication: CHILLS
     Dosage: 100 MG, QD, IV DRIP
     Route: 041
     Dates: start: 20040101, end: 20040101
  2. ARTFED [Concomitant]
  3. CEFOPERAZONE SODIUM/SULBACTAM SODIUM (CEFOPERAZONE SODIUM, SULBACTAM S [Concomitant]
  4. DIPROPHYLLINE  (DIPROPHYLLINE) [Concomitant]
  5. NICOLDA [Concomitant]
  6. SULPYRINE (METAMIZOLE SODIUM) [Concomitant]

REACTIONS (4)
  - BLOOD PRESSURE INCREASED [None]
  - DEPRESSED LEVEL OF CONSCIOUSNESS [None]
  - RESPIRATION ABNORMAL [None]
  - TACHYCARDIA [None]
